FAERS Safety Report 10631302 (Version 1)
Quarter: 2014Q4

REPORT INFORMATION
  Report Type: Spontaneous
  Country: US (occurrence: US)
  Receive Date: 20141205
  Receipt Date: 20141205
  Transmission Date: 20150529
  Serious: No
  Sender: FDA-Public Use
  Company Number: US-BRISTOL-MYERS SQUIBB COMPANY-21488283

PATIENT
  Age: 59 Year
  Sex: Female
  Weight: 62.4 kg

DRUGS (7)
  1. PRIMIDONE. [Concomitant]
     Active Substance: PRIMIDONE
  2. ABILIFY [Suspect]
     Active Substance: ARIPIPRAZOLE
  3. CLONAZEPAM. [Concomitant]
     Active Substance: CLONAZEPAM
  4. ROPINIROLE. [Concomitant]
     Active Substance: ROPINIROLE
  5. AMANTADINE [Concomitant]
     Active Substance: AMANTADINE
  6. LAMOTRIGINE. [Concomitant]
     Active Substance: LAMOTRIGINE
  7. VIGABATRIN [Concomitant]
     Active Substance: VIGABATRIN

REACTIONS (1)
  - Parkinsonism [Unknown]
